FAERS Safety Report 6133449 (Version 16)
Quarter: 2013Q3

REPORT INFORMATION
  Report Type: Spontaneous
  Country: US (occurrence: US)
  Receive Date: 20060922
  Receipt Date: 20130828
  Transmission Date: 20140515
  Serious: Yes (Other)
  Sender: FDA-Public Use
  Company Number: PHEH2006US11689

PATIENT
  Sex: Female
  Weight: 189 kg

DRUGS (27)
  1. ZOMETA [Suspect]
     Indication: METASTASES TO BONE
     Dates: start: 20020316
  2. ZOMETA [Suspect]
     Indication: BREAST CANCER
     Dates: start: 2004, end: 2005
  3. AMOXICILLIN [Suspect]
  4. ARIMIDEX ^ASTRAZENECA^ [Concomitant]
     Dates: start: 20090127
  5. PENICILLIN V [Concomitant]
  6. VICODIN [Concomitant]
  7. CLINDAMYCIN [Concomitant]
  8. KEFLEX                                  /UNK/ [Concomitant]
  9. IBUPROFEN [Concomitant]
  10. LOVASTATIN [Concomitant]
     Dosage: 40 MG, UNK
     Route: 048
  11. SENNA [Concomitant]
  12. WARFARIN [Concomitant]
  13. HYDROCODONE [Concomitant]
  14. VITAMIN D3 [Concomitant]
     Dates: end: 20011024
  15. LORAZEPAM [Concomitant]
  16. PROVERA [Concomitant]
  17. PREMPRO [Concomitant]
     Dates: end: 20011024
  18. MSM [Concomitant]
     Dates: end: 20011024
  19. ATENOLOL [Concomitant]
     Dosage: 25 MG, UNK
     Dates: end: 20011024
  20. LIDEX [Concomitant]
  21. TYLENOL [Concomitant]
  22. PEPCID [Concomitant]
  23. ZANTAC [Concomitant]
     Dosage: 75 MG,
  24. KEPPRA [Concomitant]
  25. LAMICTAL ^BURROUGHS WELLCOME^ [Concomitant]
     Dosage: 25 MG, DAILY
  26. ARIMIDEX [Concomitant]
  27. ADVIL [Concomitant]

REACTIONS (116)
  - Spinal osteoarthritis [Unknown]
  - Osteoarthritis [Unknown]
  - Systemic sclerosis [Unknown]
  - Osteonecrosis of jaw [Not Recovered/Not Resolved]
  - Tooth loss [Unknown]
  - Infection [Unknown]
  - Purulent discharge [Unknown]
  - Primary sequestrum [Unknown]
  - Osteomyelitis [Not Recovered/Not Resolved]
  - Discomfort [Unknown]
  - Abscess jaw [Unknown]
  - Insomnia [Recovered/Resolved]
  - Oedema [Unknown]
  - Seroma [Unknown]
  - Depression [Recovered/Resolved]
  - Face oedema [Unknown]
  - Swelling [Recovering/Resolving]
  - Injury [Unknown]
  - Pain [Unknown]
  - Decreased interest [Unknown]
  - General physical health deterioration [Unknown]
  - Bone disorder [Unknown]
  - Fistula [Unknown]
  - Metastases to bone [Unknown]
  - Metastases to spine [Unknown]
  - Vulval disorder [Recovered/Resolved]
  - Pruritus genital [Unknown]
  - Tobacco abuse [Unknown]
  - Skin atrophy [Unknown]
  - Rash [Recovered/Resolved]
  - Lymphoedema [Unknown]
  - Urticaria [Unknown]
  - Eczema [Unknown]
  - Tinea cruris [Unknown]
  - Hot flush [Unknown]
  - Monarthritis [Unknown]
  - Confusional state [Unknown]
  - Diabetic microangiopathy [Unknown]
  - Temporal lobe epilepsy [Unknown]
  - Transient ischaemic attack [Recovering/Resolving]
  - Neoplasm progression [Unknown]
  - Malignant neoplasm progression [Unknown]
  - Fibrocystic breast disease [Unknown]
  - Breast cyst [Unknown]
  - Breast calcifications [Unknown]
  - Hypercholesterolaemia [Unknown]
  - Hypertension [Unknown]
  - Bursitis [Unknown]
  - Sinus congestion [Unknown]
  - Memory impairment [Unknown]
  - Deafness [Unknown]
  - Neuropathy peripheral [Unknown]
  - Joint stiffness [Unknown]
  - Hypoaesthesia [Unknown]
  - Arthralgia [Unknown]
  - Burning sensation [Unknown]
  - Exostosis [Unknown]
  - Musculoskeletal pain [Unknown]
  - Basal cell carcinoma [Unknown]
  - Nasal neoplasm [Unknown]
  - Lumbar spinal stenosis [Unknown]
  - Back pain [Unknown]
  - Gait disturbance [Unknown]
  - Synovial cyst [Unknown]
  - Decubitus ulcer [Unknown]
  - Asthenia [Unknown]
  - Fatigue [Unknown]
  - Diverticulum intestinal [Unknown]
  - Intervertebral disc protrusion [Unknown]
  - Spondylolisthesis [Unknown]
  - Dermatitis [Unknown]
  - Sciatica [Unknown]
  - Malignant melanoma [Unknown]
  - Thyroid mass [Unknown]
  - Haemangioma of bone [Unknown]
  - Arthropathy [Unknown]
  - Scoliosis [Unknown]
  - Rib fracture [Unknown]
  - Essential hypertension [Unknown]
  - Tendonitis [Unknown]
  - Bone lesion [Unknown]
  - Pain in extremity [Unknown]
  - Joint swelling [Unknown]
  - Ataxia [Unknown]
  - Bone cyst [Unknown]
  - Chest pain [Unknown]
  - Fall [Unknown]
  - Haematuria [Unknown]
  - Osteoporosis [Unknown]
  - Contusion [Unknown]
  - Neurodermatitis [Unknown]
  - Musculoskeletal chest pain [Unknown]
  - Bladder outlet obstruction [Unknown]
  - Urinary retention [Unknown]
  - Balance disorder [Unknown]
  - Nausea [Unknown]
  - Headache [Unknown]
  - Diarrhoea [Unknown]
  - Dizziness [Unknown]
  - Osteitis [Unknown]
  - Vision blurred [Unknown]
  - Cataract nuclear [Unknown]
  - Cataract cortical [Unknown]
  - Rib deformity [Unknown]
  - Lymphadenopathy mediastinal [Unknown]
  - Umbilical hernia [Unknown]
  - Blister [Unknown]
  - Exposed bone in jaw [Unknown]
  - Mass [Unknown]
  - Wound [Unknown]
  - Wound secretion [Unknown]
  - Urinary incontinence [Unknown]
  - Device issue [Unknown]
  - Panic attack [Unknown]
  - Anxiety [Unknown]
  - Metastases to chest wall [Unknown]
